FAERS Safety Report 19060625 (Version 1)
Quarter: 2021Q1

REPORT INFORMATION
  Report Type: Report from Study
  Country: CR (occurrence: CR)
  Receive Date: 20210325
  Receipt Date: 20210325
  Transmission Date: 20210420
  Serious: Yes (Hospitalization)
  Sender: FDA-Public Use
  Company Number: NVSC2021CR064823

PATIENT
  Age: 75 Year
  Sex: Female

DRUGS (2)
  1. EXFORGE HCT [Suspect]
     Active Substance: AMLODIPINE BESYLATE\HYDROCHLOROTHIAZIDE\VALSARTAN
     Indication: PRODUCT USED FOR UNKNOWN INDICATION
     Dosage: UNK (STARTED 6 MONTHS AGO APPROXIMATELY)
     Route: 065
  2. CO?DIOVAN [Suspect]
     Active Substance: HYDROCHLOROTHIAZIDE\VALSARTAN
     Indication: PRODUCT USED FOR UNKNOWN INDICATION
     Dosage: UNK (STARTED 1 YEAR AGO APPROXIMATELY) AND STOOPED ON (6 MONTHS AGO APPROXIMATELY)
     Route: 065

REACTIONS (4)
  - Infarction [Unknown]
  - Wrong product administered [Unknown]
  - Hypoacusis [Unknown]
  - Blood pressure increased [Unknown]
